FAERS Safety Report 6274652-8 (Version None)
Quarter: 2009Q3

REPORT INFORMATION
  Report Type: 
  Country: None (occurrence: None)
  Receive Date: 20090717
  Receipt Date: 20090702
  Transmission Date: 20100115
  Serious: Yes (Other)
  Sender: FDA-Public Use
  Company Number: 2009EK001914

PATIENT

DRUGS (1)
  1. CARDENE [Suspect]
     Indication: HYPERTENSION
     Dosage: 20 MG; X1; IV
     Route: 042

REACTIONS (1)
  - HYPOXIA [None]
